FAERS Safety Report 6045405-0 (Version None)
Quarter: 2009Q1

REPORT INFORMATION
  Report Type: 
  Country: None (occurrence: None)
  Receive Date: 20090121
  Receipt Date: 20090115
  Transmission Date: 20090719
  Serious: Yes (Hospitalization)
  Sender: FDA-Public Use
  Company Number: US-PFIZER INC-2008096997

PATIENT
  Sex: Male
  Weight: 70.748 kg

DRUGS (20)
  1. ANIDULAFUNGIN [Suspect]
     Indication: INFECTION
     Dosage: 100 MG, 2X/DAY
     Route: 042
     Dates: start: 20081031, end: 20081031
  2. ANIDULAFUNGIN [Suspect]
     Dosage: 100 MG, 1X/DAY
     Route: 042
     Dates: start: 20081101, end: 20081104
  3. FLUCONAZOLE [Suspect]
     Indication: INFECTION
     Dosage: QDAY
     Route: 048
     Dates: start: 20081105, end: 20081113
  4. HEPARIN [Concomitant]
     Dosage: UNK
     Route: 058
     Dates: start: 20081029, end: 20081106
  5. DILAUDID [Concomitant]
     Dosage: UNK
     Route: 048
     Dates: start: 20081029
  6. HYDROCORTISONE [Concomitant]
     Dosage: UNK
     Route: 042
     Dates: start: 20081031, end: 20081103
  7. MAGNESIUM SULFATE [Concomitant]
     Dosage: UNK
     Route: 042
     Dates: start: 20081031, end: 20081104
  8. ZOSYN [Concomitant]
     Dosage: UNK
     Route: 042
     Dates: start: 20081101, end: 20081105
  9. TORADOL [Concomitant]
     Dosage: UNK
     Route: 042
     Dates: start: 20081101, end: 20081103
  10. NICODERM CQ [Suspect]
     Dosage: UNK
     Route: 003
     Dates: start: 20081102, end: 20081106
  11. POTASSIUM CHLORIDE [Concomitant]
     Dosage: UNK
     Route: 042
     Dates: start: 20081031, end: 20081103
  12. POTASSIUM PHOSPHATE [Concomitant]
     Dosage: UNK
     Route: 042
     Dates: start: 20081002, end: 20081104
  13. ROBAXIN [Concomitant]
     Dosage: UNK
     Route: 048
     Dates: start: 20081104, end: 20081106
  14. MULTIVITAMIN ^LAPPE^ [Concomitant]
     Dosage: UNK
     Route: 030
     Dates: start: 20081103, end: 20081105
  15. IRON [Concomitant]
     Dosage: UNK
     Route: 048
     Dates: start: 20081103, end: 20081105
  16. PREDNISONE [Concomitant]
     Dosage: UNK
     Route: 048
     Dates: start: 20081104
  17. ZYVOX [Concomitant]
     Dosage: UNK
     Route: 042
     Dates: start: 20081104, end: 20081105
  18. MOTRIN [Concomitant]
     Dosage: UNK
     Route: 048
     Dates: start: 20081104, end: 20081106
  19. MAGNESIUM OXIDE [Concomitant]
     Dosage: UNK
     Route: 048
     Dates: start: 20081103, end: 20081106
  20. MAALOX [Concomitant]
     Dosage: UNK
     Route: 048
     Dates: start: 20081105, end: 20081105

REACTIONS (1)
  - LOCALISED INTRAABDOMINAL FLUID COLLECTION [None]
